FAERS Safety Report 5606332-3 (Version None)
Quarter: 2008Q1

REPORT INFORMATION
  Report Type: 
  Country: None (occurrence: None)
  Receive Date: 20080129
  Receipt Date: 20070622
  Transmission Date: 20080703
  Serious: No
  Sender: FDA-Public Use
  Company Number: A0659681A

PATIENT
  Age: 46 Year
  Sex: Male

DRUGS (2)
  1. WELLBUTRIN [Suspect]
     Indication: DEPRESSION
     Dosage: 300MG PER DAY
     Route: 048
     Dates: start: 20070620
  2. TOPAMAX [Concomitant]

REACTIONS (5)
  - ANXIETY [None]
  - CRYING [None]
  - FEAR [None]
  - NERVOUSNESS [None]
  - PARANOIA [None]
